FAERS Safety Report 10307946 (Version 2)
Quarter: 2014Q3

REPORT INFORMATION
  Report Type: Report from Study
  Country: US (occurrence: US)
  Receive Date: 20140716
  Receipt Date: 20140729
  Transmission Date: 20150326
  Serious: Yes (Other)
  Sender: FDA-Public Use
  Company Number: PHEH2014US014173

PATIENT
  Sex: Female

DRUGS (1)
  1. EXELON PATCH [Suspect]
     Active Substance: RIVASTIGMINE
     Dosage: UNK UKN, UNK
     Route: 062

REACTIONS (8)
  - Mood altered [Unknown]
  - Disease progression [Unknown]
  - Abnormal behaviour [Unknown]
  - Malaise [Unknown]
  - Anxiety [Unknown]
  - Dementia [Unknown]
  - Depression [Unknown]
  - Anger [Unknown]
